FAERS Safety Report 5106370-3 (Version None)
Quarter: 2006Q3

REPORT INFORMATION
  Report Type: 
  Country: None (occurrence: None)
  Receive Date: 20060918
  Receipt Date: 20060824
  Transmission Date: 20061208
  Serious: Yes (Hospitalization, Other)
  Sender: FDA-Public Use
  Company Number: US-AVENTIS-200617137US

PATIENT
  Sex: Female

DRUGS (1)
  1. KETEK [Suspect]
     Indication: SINUSITIS
     Dosage: DOSE: UNK
     Dates: start: 20060117

REACTIONS (4)
  - HEPATIC ENZYME INCREASED [None]
  - LIVER DISORDER [None]
  - MYOCARDIAL INFARCTION [None]
  - UNEVALUABLE EVENT [None]
